FAERS Safety Report 15414142 (Version 2)
Quarter: 2019Q1

REPORT INFORMATION
  Report Type: Spontaneous
  Country: US (occurrence: US)
  Receive Date: 20180921
  Receipt Date: 20190302
  Transmission Date: 20190417
  Serious: Yes (Hospitalization)
  Sender: FDA-Public Use
  Company Number: US-NOVOPROD-601252

PATIENT
  Age: 34 Year
  Sex: Female
  Weight: 124.72 kg

DRUGS (3)
  1. VICTOZA [Suspect]
     Active Substance: LIRAGLUTIDE
     Dosage: 1.2 MG, QD
     Route: 058
     Dates: start: 20180316, end: 20180512
  2. LISINOPRIL. [Suspect]
     Active Substance: LISINOPRIL
     Indication: PRODUCT USED FOR UNKNOWN INDICATION
     Dosage: UNK
     Route: 048
     Dates: end: 20180410
  3. VICTOZA [Suspect]
     Active Substance: LIRAGLUTIDE
     Indication: BLOOD GLUCOSE ABNORMAL
     Dosage: 0.6 MG, QD
     Route: 058
     Dates: start: 20180309, end: 20180315

REACTIONS (5)
  - Hypersensitivity [Recovered/Resolved]
  - Asthma [Recovering/Resolving]
  - Diarrhoea [Recovered/Resolved]
  - Injection site pruritus [Unknown]
  - Injection site erythema [Unknown]

NARRATIVE: CASE EVENT DATE: 201803
